FAERS Safety Report 9412251 (Version 5)
Quarter: 2015Q3

REPORT INFORMATION
  Report Type: Report from Study
  Country: CN (occurrence: CN)
  Receive Date: 20130722
  Receipt Date: 20150825
  Transmission Date: 20151125
  Serious: Yes (Death, Hospitalization)
  Sender: FDA-Public Use
  Company Number: CN-SANOFI-AVENTIS-2013SA072874

PATIENT
  Age: 48 Year
  Sex: Female
  Weight: 50 kg

DRUGS (18)
  1. IRINOTECAN [Suspect]
     Active Substance: IRINOTECAN
     Indication: ADENOCARCINOMA
     Route: 042
     Dates: start: 20130619, end: 20130619
  2. ORNITHINE ASPARTATE [Concomitant]
     Active Substance: ORNITHINE ASPARTATE
     Dates: start: 20130619, end: 20130621
  3. CARBAZOCHROME SODIUM SULFONATE [Concomitant]
     Active Substance: CARBAZOCHROME SODIUM SULFONATE
     Dates: start: 20130620, end: 20130620
  4. 5-FU [Suspect]
     Active Substance: FLUOROURACIL
     Indication: ADENOCARCINOMA
     Route: 040
     Dates: start: 20130619, end: 20130619
  5. LEUCOVORIN. [Suspect]
     Active Substance: LEUCOVORIN
     Indication: ADENOCARCINOMA
     Route: 042
     Dates: start: 20130520, end: 20130520
  6. PANTOPRAZOLE SODIUM. [Concomitant]
     Active Substance: PANTOPRAZOLE SODIUM
     Dates: start: 20130619, end: 20130621
  7. 5-FU [Suspect]
     Active Substance: FLUOROURACIL
     Indication: ADENOCARCINOMA
     Route: 040
     Dates: start: 20130520, end: 20130520
  8. LEUCOVORIN. [Suspect]
     Active Substance: LEUCOVORIN
     Indication: ADENOCARCINOMA
     Route: 042
     Dates: start: 20130619, end: 20130619
  9. ATROPINE. [Concomitant]
     Active Substance: ATROPINE
     Dates: start: 20130619, end: 20130619
  10. PLACEBO [Suspect]
     Active Substance: UNSPECIFIED INGREDIENT
     Indication: ADENOCARCINOMA
     Dosage: DOSE:1 UNIT(S)
     Route: 042
     Dates: start: 20130619, end: 20130619
  11. IRINOTECAN [Suspect]
     Active Substance: IRINOTECAN
     Indication: ADENOCARCINOMA
     Route: 042
     Dates: start: 20130520, end: 20130520
  12. THROMBIN [Concomitant]
     Active Substance: THROMBIN
     Dates: start: 20130620, end: 20130620
  13. FATS [Concomitant]
     Active Substance: LIPOSYN (R) INTRAVENOUS FAT EMULSION
     Dates: start: 20130620, end: 20130620
  14. 5-FU [Suspect]
     Active Substance: FLUOROURACIL
     Indication: ADENOCARCINOMA
     Route: 042
     Dates: start: 20130520, end: 20130522
  15. VITAMIN B6 [Concomitant]
     Active Substance: PYRIDOXINE HYDROCHLORIDE
     Dates: start: 20130619, end: 20130621
  16. 5-FU [Suspect]
     Active Substance: FLUOROURACIL
     Indication: ADENOCARCINOMA
     Route: 042
     Dates: start: 20130619, end: 20130621
  17. METOCLOPRAMIDE. [Concomitant]
     Active Substance: METOCLOPRAMIDE
     Dates: start: 20130619, end: 20130621
  18. TROPISETRON [Concomitant]
     Active Substance: TROPISETRON
     Dates: start: 20130619, end: 20130621

REACTIONS (2)
  - Fatigue [Not Recovered/Not Resolved]
  - Cardiopulmonary failure [Fatal]

NARRATIVE: CASE EVENT DATE: 20130628
